FAERS Safety Report 11757534 (Version 3)
Quarter: 2019Q4

REPORT INFORMATION
  Report Type: Spontaneous
  Country: US (occurrence: US)
  Receive Date: 20151120
  Receipt Date: 20191209
  Transmission Date: 20200122
  Serious: Yes (Hospitalization)
  Sender: FDA-Public Use
  Company Number: US-JAZZ-2014-US-008931

PATIENT
  Age: 32 Year
  Sex: Female
  Weight: 106.58 kg

DRUGS (3)
  1. FAZACLO [Suspect]
     Active Substance: CLOZAPINE
     Indication: SUICIDAL IDEATION
  2. FAZACLO [Suspect]
     Active Substance: CLOZAPINE
     Indication: PARANOIA
     Dosage: 25-500 MG, QD
     Route: 048
     Dates: start: 20070523
  3. FAZACLO [Suspect]
     Active Substance: CLOZAPINE
     Indication: SCHIZOAFFECTIVE DISORDER

REACTIONS (9)
  - Paranoia [Unknown]
  - Malaise [Not Recovered/Not Resolved]
  - Dysgeusia [Not Recovered/Not Resolved]
  - Vomiting [Not Recovered/Not Resolved]
  - Retching [Not Recovered/Not Resolved]
  - Product physical issue [Unknown]
  - Cough [Not Recovered/Not Resolved]
  - Drug ineffective [Recovered/Resolved]
  - Weight increased [Unknown]

NARRATIVE: CASE EVENT DATE: 20140723
